FAERS Safety Report 5208571-2 (Version None)
Quarter: 2006Q4

REPORT INFORMATION
  Report Type: 
  Country: None (occurrence: None)
  Receive Date: 20061027
  Receipt Date: 20060329
  Transmission Date: 20070319
  Serious: Yes (Hospitalization, Other)
  Sender: FDA-Public Use
  Company Number: HQWYE600131MAR06

PATIENT
  Age: 69 Year
  Sex: Female
  Weight: 56.75 kg

DRUGS (8)
  1. PREMARIN [Suspect]
     Indication: OESTROGEN REPLACEMENT THERAPY
     Dosage: 0.625MG ORAL
     Route: 048
     Dates: start: 19620101, end: 20060208
  2. PREMARIN [Suspect]
     Indication: OESTROGEN REPLACEMENT THERAPY
     Dosage: 0.625MG ORAL
     Route: 048
     Dates: start: 20060301
  3. SYNTHROID [Concomitant]
  4. NEURONTIN [Concomitant]
  5. ALBUTEROL [Concomitant]
  6. LANOXIN [Concomitant]
  7. PRAVACHOL [Concomitant]
  8. ASPIRIN [Concomitant]

REACTIONS (8)
  - AMNESIA [None]
  - COGNITIVE DISORDER [None]
  - CONFUSIONAL STATE [None]
  - DEPRESSION [None]
  - DRUG WITHDRAWAL SYNDROME [None]
  - INSOMNIA [None]
  - IRRITABILITY [None]
  - UTERINE CANCER [None]
